FAERS Safety Report 24924701 (Version 1)
Quarter: 2025Q1

REPORT INFORMATION
  Report Type: Report from Study
  Country: US (occurrence: US)
  Receive Date: 20250204
  Receipt Date: 20250204
  Transmission Date: 20250408
  Serious: No
  Sender: EXELIXIS
  Company Number: US-EXELIXIS-CABO-24075584

PATIENT
  Sex: Female

DRUGS (2)
  1. CABOMETYX [Suspect]
     Active Substance: CABOZANTINIB S-MALATE
     Indication: Renal cancer
     Dosage: 20 MG, QD
     Route: 048
  2. CABOMETYX [Suspect]
     Active Substance: CABOZANTINIB S-MALATE
     Indication: Metastases to adrenals
     Dosage: 20MG ALTERNATING WITH 40MG, QOD
     Route: 048

REACTIONS (8)
  - Blood pressure increased [Unknown]
  - Gastrointestinal motility disorder [Unknown]
  - Nausea [Unknown]
  - Pain in extremity [Unknown]
  - Pruritus [Unknown]
  - Fatigue [Unknown]
  - Product prescribing issue [Unknown]
  - Inappropriate schedule of product administration [Unknown]
